FAERS Safety Report 6886786-5 (Version None)
Quarter: 2010Q3

REPORT INFORMATION
  Report Type: 
  Country: None (occurrence: None)
  Receive Date: 20100730
  Receipt Date: 20100721
  Transmission Date: 20110219
  Serious: Yes (Other)
  Sender: FDA-Public Use
  Company Number: CN-PFIZER INC-2010090839

PATIENT

DRUGS (3)
  1. CADUET [Suspect]
     Dosage: 1 TABLET, ONCE DAILY
     Route: 048
     Dates: start: 20100601, end: 20100101
  2. LIPITOR [Concomitant]
     Dosage: 1 TABLET, EVERY NIGHT
     Route: 048
     Dates: end: 20100601
  3. NORVASC [Concomitant]
     Dosage: 1/2 TABLET, TWICE DAILY
     Route: 048
     Dates: end: 20100601

REACTIONS (4)
  - BLOOD PRESSURE DECREASED [None]
  - BLOOD PRESSURE FLUCTUATION [None]
  - DIZZINESS [None]
  - SOMNOLENCE [None]
